FAERS Safety Report 19209343 (Version 1)
Quarter: 2021Q2

REPORT INFORMATION
  Report Type: Spontaneous
  Country: US (occurrence: US)
  Receive Date: 20210503
  Receipt Date: 20210503
  Transmission Date: 20210717
  Serious: Yes (Other)
  Sender: FDA-Public Use
  Company Number: US-ELI_LILLY_AND_COMPANY-US202104010697

PATIENT
  Sex: Female

DRUGS (2)
  1. HUMALOG [Suspect]
     Active Substance: INSULIN LISPRO
     Indication: DIABETES MELLITUS
     Dosage: 30 U, UNKNOWN
     Route: 058
  2. TRESIBA [Concomitant]
     Active Substance: INSULIN DEGLUDEC
     Indication: DIABETES MELLITUS
     Dosage: UNK, UNKNOWN

REACTIONS (7)
  - Blood calcium increased [Unknown]
  - Vitamin D increased [Unknown]
  - Retinopathy [Unknown]
  - Blood magnesium increased [Unknown]
  - Post procedural complication [Unknown]
  - Bone disorder [Unknown]
  - Adrenal adenoma [Unknown]
